FAERS Safety Report 5154410-8 (Version None)
Quarter: 2006Q4

REPORT INFORMATION
  Report Type: 
  Country: None (occurrence: None)
  Receive Date: 20061114
  Receipt Date: 20061031
  Transmission Date: 20070319
  Serious: Yes (Hospitalization, Disabling)
  Sender: FDA-Public Use
  Company Number: A-CH2006-12757

PATIENT
  Age: 12 Year
  Sex: Female
  Weight: 41 kg

DRUGS (1)
  1. ZAVESCA [Suspect]
     Indication: NIEMANN-PICK DISEASE
     Dosage: 100 MG QD ORAL
     Route: 048
     Dates: start: 20051020

REACTIONS (4)
  - CONVULSION [None]
  - DYSPHAGIA [None]
  - EPILEPSY [None]
  - TREMOR [None]
